FAERS Safety Report 18572882 (Version 1)
Quarter: 2020Q4

REPORT INFORMATION
  Report Type: Report from Study
  Country: None (occurrence: US)
  Receive Date: 20201203
  Receipt Date: 20201203
  Transmission Date: 20210114
  Serious: Yes (Other)
  Sender: FDA-Public Use
  Company Number: US-ABBVIE-20K-163-3672042-00

PATIENT
  Age: 77 Year
  Sex: Male

DRUGS (1)
  1. VENCLEXTA [Suspect]
     Active Substance: VENETOCLAX
     Indication: ACUTE MYELOID LEUKAEMIA
     Route: 048
     Dates: start: 20201116

REACTIONS (5)
  - Respiratory tract congestion [Unknown]
  - Discouragement [Unknown]
  - Fatigue [Unknown]
  - Cognitive disorder [Unknown]
  - Constipation [Unknown]

NARRATIVE: CASE EVENT DATE: 202011
